FAERS Safety Report 4379797-5 (Version None)
Quarter: 2004Q2

REPORT INFORMATION
  Report Type: 
  Country: None (occurrence: None)
  Receive Date: 20040614
  Receipt Date: 20040531
  Transmission Date: 20050107
  Serious: Yes (Life-Threatening)
  Sender: FDA-Public Use
  Company Number: 2004AP02727

PATIENT
  Age: 73 Year
  Sex: Female

DRUGS (9)
  1. OMEPRAZOLE [Suspect]
     Indication: REFLUX OESOPHAGITIS
     Dosage: 10 MG QD PO
     Route: 048
     Dates: start: 20021126
  2. OMEPRAZOLE [Suspect]
     Indication: REFLUX OESOPHAGITIS
     Dosage: 20 MG QD PO
     Route: 048
     Dates: end: 20040213
  3. OMEPRAZOLE [Suspect]
     Indication: REFLUX OESOPHAGITIS
     Dosage: 10 MG BID PO
     Route: 048
     Dates: start: 20040214, end: 20040227
  4. MUCOSAL L [Concomitant]
  5. BIOFERMIN [Concomitant]
  6. HOKUNALIN [Concomitant]
  7. MERISLON [Concomitant]
  8. MUCODYNE [Concomitant]
  9. CLARITH [Concomitant]

REACTIONS (5)
  - BACK PAIN [None]
  - COLLAGEN DISORDER [None]
  - INTERSTITIAL LUNG DISEASE [None]
  - STAPHYLOCOCCAL INFECTION [None]
  - THERAPEUTIC RESPONSE DECREASED [None]
